FAERS Safety Report 12286625 (Version 1)
Quarter: 2016Q2

REPORT INFORMATION
  Report Type: Spontaneous
  Country: US (occurrence: US)
  Receive Date: 20160420
  Receipt Date: 20160420
  Transmission Date: 20160815
  Serious: Yes (Other)
  Sender: FDA-Public Use
  Company Number: US-HOSPIRA-3258798

PATIENT
  Age: 63 Year
  Sex: Female

DRUGS (2)
  1. PACLITAXEL. [Suspect]
     Active Substance: PACLITAXEL
     Indication: ENDOMETRIAL ADENOCARCINOMA
     Dosage: 21-DAY INTERVALS; TOTAL CUMULATIVE DOSE: 1511 MG
  2. CARBOPLATIN. [Suspect]
     Active Substance: CARBOPLATIN
     Indication: ENDOMETRIAL ADENOCARCINOMA
     Dosage: 21-DAY INTERVALS; TOTAL CUMULATIVE DOSE: 4312 MG

REACTIONS (2)
  - Myelodysplastic syndrome [Unknown]
  - Acute myelomonocytic leukaemia [Unknown]
